FAERS Safety Report 22163244 (Version 1)
Quarter: 2023Q2

REPORT INFORMATION
  Report Type: Spontaneous
  Country: DE (occurrence: DE)
  Receive Date: 20230401
  Receipt Date: 20230401
  Transmission Date: 20230722
  Serious: Yes (Other)
  Sender: FDA-Public Use
  Company Number: DE-002147023-NVSC2023DE049244

PATIENT
  Age: 84 Year
  Sex: Female
  Weight: 57 kg

DRUGS (9)
  1. MOXONIDINE [Suspect]
     Active Substance: MOXONIDINE
     Indication: Hypertension
     Dosage: UNK (0.2 - 0.3)
     Route: 048
     Dates: start: 20200610
  2. MOXONIDINE [Suspect]
     Active Substance: MOXONIDINE
     Indication: Arrhythmia
  3. CANDESARTAN [Suspect]
     Active Substance: CANDESARTAN
     Indication: Hypertension
     Dosage: UNK (8.0 - 0 - 8 PLUS 16.0)
     Route: 048
     Dates: start: 20201016
  4. ROSUVASTATIN [Suspect]
     Active Substance: ROSUVASTATIN
     Indication: Hypercholesterolaemia
     Dosage: UNK (0 - 20/10 - 0)
     Route: 048
     Dates: start: 20200610
  5. TORSEMIDE [Suspect]
     Active Substance: TORSEMIDE
     Indication: Left ventricular failure
     Dosage: UNK (1-1-0)
     Route: 048
     Dates: start: 20200610
  6. PREDNISOLONE [Suspect]
     Active Substance: PREDNISOLONE
     Indication: Polyneuropathy
     Dosage: UNK (2.0 - 0 - 0)
     Route: 048
     Dates: start: 20140122
  7. NEBIVOLOL [Suspect]
     Active Substance: NEBIVOLOL
     Indication: Hypertension
     Dosage: UNK (0.25 - 0 - 0)
     Route: 048
     Dates: start: 20201016
  8. NEBIVOLOL [Suspect]
     Active Substance: NEBIVOLOL
     Indication: Cardiac failure
  9. ASPIRIN [Concomitant]
     Active Substance: ASPIRIN
     Indication: Arteriosclerosis
     Dosage: UNK (0-1-0)
     Route: 048
     Dates: start: 20140122

REACTIONS (4)
  - Polyneuropathy [Not Recovered/Not Resolved]
  - Concomitant disease aggravated [Not Recovered/Not Resolved]
  - Dizziness [Not Recovered/Not Resolved]
  - Incorrect dose administered [Not Recovered/Not Resolved]

NARRATIVE: CASE EVENT DATE: 20140122
